FAERS Safety Report 8407522-7 (Version None)
Quarter: 2012Q2

REPORT INFORMATION
  Report Type: 
  Country: None (occurrence: None)
  Receive Date: 20120604
  Receipt Date: 20120525
  Transmission Date: 20120825
  Serious: Yes (Other)
  Sender: FDA-Public Use
  Company Number: CA-JNJFOC-20120519598

PATIENT
  Sex: Female
  Weight: 77.2 kg

DRUGS (4)
  1. REMICADE [Suspect]
     Dosage: WEEK 2 INDUCTION (DATE OF 2ND DOSE NOT PROVIDED)
     Dates: start: 20120501, end: 20120525
  2. ANTI-DEPRESSANT [Concomitant]
  3. SYNTHROID [Concomitant]
  4. REMICADE [Suspect]
     Indication: PSORIASIS
     Dosage: WEEK 0 INDUCTION
     Dates: start: 20120502

REACTIONS (1)
  - BREAST CANCER [None]
